FAERS Safety Report 20509381 (Version 1)
Quarter: 2022Q1

REPORT INFORMATION
  Report Type: Report from Study
  Country: TW (occurrence: TW)
  Receive Date: 20220223
  Receipt Date: 20220223
  Transmission Date: 20220423
  Serious: Yes (Hospitalization)
  Sender: FDA-Public Use
  Company Number: TW-ABBVIE-22K-153-4282825-00

PATIENT
  Age: 70 Year
  Sex: Female
  Weight: 77 kg

DRUGS (1)
  1. HUMIRA [Suspect]
     Active Substance: ADALIMUMAB
     Indication: Ankylosing spondylitis
     Route: 058
     Dates: start: 20181225

REACTIONS (11)
  - Dyspnoea [Not Recovered/Not Resolved]
  - Oedema peripheral [Not Recovered/Not Resolved]
  - Weight increased [Unknown]
  - Urine output decreased [Unknown]
  - Pleural effusion [Unknown]
  - Pulmonary calcification [Unknown]
  - Blood parathyroid hormone abnormal [Unknown]
  - Renal disorder [Unknown]
  - Cardiomegaly [Unknown]
  - Aortic disorder [Unknown]
  - Scoliosis [Unknown]

NARRATIVE: CASE EVENT DATE: 20210101
